FAERS Safety Report 23351150 (Version 2)
Quarter: 2024Q1

REPORT INFORMATION
  Report Type: Report from Study
  Country: KR (occurrence: KR)
  Receive Date: 20231229
  Receipt Date: 20240102
  Transmission Date: 20240410
  Serious: Yes (Other)
  Sender: FDA-Public Use
  Company Number: KR-BAUSCHBL-2023BNL013101

PATIENT
  Age: 39 Year
  Sex: Male

DRUGS (5)
  1. VYZULTA [Suspect]
     Active Substance: LATANOPROSTENE BUNOD
     Indication: Ocular hypertension
     Dosage: OU
     Route: 047
     Dates: start: 20230512
  2. COSOPT [Concomitant]
     Active Substance: DORZOLAMIDE HYDROCHLORIDE\TIMOLOL MALEATE
     Indication: Ocular hypertension
     Dosage: OU
     Route: 047
     Dates: start: 20230425
  3. ALPHAGAN P [Concomitant]
     Active Substance: BRIMONIDINE TARTRATE
     Indication: Ocular hypertension
     Dosage: OU
     Route: 047
     Dates: start: 20230714
  4. NEWHYALUNI [Concomitant]
     Indication: Prophylaxis
     Dosage: OU
     Route: 047
     Dates: start: 20230512
  5. LEVOFLOXACIN [Concomitant]
     Active Substance: LEVOFLOXACIN
     Indication: Choroidal neovascularisation
     Dosage: OD
     Route: 047
     Dates: start: 20230530, end: 20230809

REACTIONS (3)
  - Choroidal neovascularisation [Recovering/Resolving]
  - Myopic chorioretinal degeneration [Recovering/Resolving]
  - Dry eye [Recovering/Resolving]

NARRATIVE: CASE EVENT DATE: 20230530
